FAERS Safety Report 9995623 (Version 1)
Quarter: 2014Q1

REPORT INFORMATION
  Report Type: Spontaneous
  Country: US (occurrence: None)
  Receive Date: 20140310
  Receipt Date: 20140310
  Transmission Date: 20141002
  Serious: Yes (Other)
  Sender: FDA-Public Use
  Company Number: None

PATIENT
  Age: 52 Year
  Sex: Female
  Weight: 55.16 kg

DRUGS (4)
  1. FARXIGA [Suspect]
     Indication: TYPE 2 DIABETES MELLITUS
     Route: 048
     Dates: start: 20140305
  2. PRAVASTATIN [Concomitant]
  3. AMLODIPINE [Concomitant]
  4. GLIMEPIRIDE [Concomitant]

REACTIONS (2)
  - Pain in extremity [None]
  - Crying [None]
